FAERS Safety Report 10020875 (Version 2)
Quarter: 2015Q2

REPORT INFORMATION
  Report Type: Spontaneous
  Country: IT (occurrence: IT)
  Receive Date: 20140319
  Receipt Date: 20150430
  Transmission Date: 20150821
  Serious: Yes (Death, Life-Threatening, Other)
  Sender: FDA-Public Use
  Company Number: IT-JNJFOC-20140303506

PATIENT
  Sex: Male

DRUGS (2)
  1. ABIRATERONE ACETATE [Suspect]
     Active Substance: ABIRATERONE ACETATE
     Indication: PROSTATE CANCER
     Dosage: 250 MG STRENGTH 4 TABLETS A DAY
     Route: 048
  2. PREDNISONE. [Suspect]
     Active Substance: PREDNISONE
     Indication: PROSTATE CANCER
     Route: 065

REACTIONS (27)
  - Deep vein thrombosis [Unknown]
  - Thrombocytopenia [Unknown]
  - Hyperbilirubinaemia [Unknown]
  - Hypertension [Unknown]
  - Abdominal pain [Unknown]
  - Anaemia [Unknown]
  - Nausea [Unknown]
  - Dyspnoea [Unknown]
  - Neutropenia [Unknown]
  - Urinary tract infection [Unknown]
  - Death [Fatal]
  - Hypokalaemia [Unknown]
  - Hyperglycaemia [Unknown]
  - Myalgia [Unknown]
  - Disease progression [Unknown]
  - Cardiac disorder [Unknown]
  - Pyrexia [Unknown]
  - Pain in extremity [Unknown]
  - Hypomagnesaemia [Unknown]
  - Constipation [Unknown]
  - Diarrhoea [Unknown]
  - Hepatotoxicity [Unknown]
  - Bone pain [Unknown]
  - Vomiting [Unknown]
  - Fatigue [Unknown]
  - Oedema [Unknown]
  - Hyponatraemia [Unknown]
